FAERS Safety Report 20422347 (Version 1)
Quarter: 2022Q1

REPORT INFORMATION
  Report Type: Report from Study
  Country: US (occurrence: US)
  Receive Date: 20220203
  Receipt Date: 20220203
  Transmission Date: 20220424
  Serious: No
  Sender: FDA-Public Use
  Company Number: US-AURINIA PHARMACEUTICALS INC.-AUR-000579

PATIENT
  Age: 75 Year
  Sex: Female

DRUGS (2)
  1. LUPKYNIS [Suspect]
     Active Substance: VOCLOSPORIN
     Indication: Lupus nephritis
     Dosage: UNK (6 PILLS A DAY)
  2. LUPKYNIS [Suspect]
     Active Substance: VOCLOSPORIN
     Dosage: UNK

REACTIONS (1)
  - Illness [Not Recovered/Not Resolved]

NARRATIVE: CASE EVENT DATE: 20211026
